FAERS Safety Report 8880039 (Version 6)
Quarter: 2013Q1

REPORT INFORMATION
  Report Type: Report from Study
  Country: CA (occurrence: CA)
  Receive Date: 20121031
  Receipt Date: 20130318
  Transmission Date: 20140127
  Serious: Yes (Death, Hospitalization, Other)
  Sender: FDA-Public Use
  Company Number: CA-ROCHE-1118300

PATIENT
  Sex: Male

DRUGS (6)
  1. ZELBORAF [Suspect]
     Indication: METASTATIC MALIGNANT MELANOMA
     Route: 048
     Dates: start: 20120725, end: 20120925
  2. HYDROMORPH CONTIN [Concomitant]
  3. DILAUDID [Concomitant]
  4. ELAVIL [Concomitant]
  5. ATIVAN [Concomitant]
     Route: 048
  6. ATIVAN [Concomitant]
     Dosage: DOSE INCREASED
     Route: 065
     Dates: start: 20120914

REACTIONS (5)
  - Abdominal pain [Not Recovered/Not Resolved]
  - Malignant melanoma [Fatal]
  - Drug intolerance [Unknown]
  - Metastases to central nervous system [Fatal]
  - Insomnia [Not Recovered/Not Resolved]
